FAERS Safety Report 8365408-0 (Version None)
Quarter: 2012Q2

REPORT INFORMATION
  Report Type: 
  Country: None (occurrence: None)
  Receive Date: 20120516
  Receipt Date: 20120514
  Transmission Date: 20120825
  Serious: Yes (Life-Threatening, Hospitalization)
  Sender: FDA-Public Use
  Company Number: JP-B.I. PHARMACEUTICALS,INC./RIDGEFIELD-2011-DE-00747GD

PATIENT
  Sex: Male
  Weight: 45 kg

DRUGS (15)
  1. URALYT [Concomitant]
     Dosage: 9DF
     Route: 048
  2. VESICARE [Concomitant]
     Dosage: 5 MG
     Route: 048
  3. ELASZYM [Concomitant]
     Dosage: 7200 MG
     Route: 048
  4. MOBIC [Suspect]
     Indication: NEPHROLITHIASIS
     Route: 048
  5. UROCALUN [Concomitant]
     Dosage: 2025 MG
     Route: 048
  6. CALBOCK [Concomitant]
     Dosage: 16 MG
     Route: 048
  7. MOBIC [Suspect]
     Indication: BACK PAIN
  8. LOXONIN [Suspect]
     Indication: BACK PAIN
     Route: 048
     Dates: start: 20030101, end: 20090301
  9. ARICEPT [Concomitant]
     Dosage: 5 MG
     Route: 048
  10. TAGAMET [Concomitant]
     Dosage: 1800 MG
     Route: 048
  11. SESDEN [Concomitant]
     Dosage: 270 MG
     Route: 048
  12. GASTROZEPIN [Concomitant]
     Dosage: 225 MG
     Route: 048
  13. FLIVAS OD [Concomitant]
     Dosage: 50 MG
     Route: 048
  14. ISOSORBIDE DINITRATE [Concomitant]
     Dosage: 80 MG
     Route: 048
  15. ISALON [Concomitant]
     Dosage: 900 MG
     Route: 048

REACTIONS (2)
  - MELAENA [None]
  - INTESTINAL STENOSIS [None]
